FAERS Safety Report 11232755 (Version 1)
Quarter: 2015Q3

REPORT INFORMATION
  Report Type: Spontaneous
  Country: PT (occurrence: PT)
  Receive Date: 20150701
  Receipt Date: 20150701
  Transmission Date: 20151125
  Serious: Yes (Hospitalization)
  Sender: FDA-Public Use
  Company Number: PHHY2015PT076115

PATIENT
  Age: 73 Year
  Sex: Male

DRUGS (2)
  1. WARFARIN [Suspect]
     Active Substance: WARFARIN
     Indication: ATRIAL FIBRILLATION
  2. WARFARIN [Suspect]
     Active Substance: WARFARIN
     Indication: HYPERTENSION
     Route: 065

REACTIONS (5)
  - Abdominal distension [Unknown]
  - Ileus [Unknown]
  - Abdominal pain [Unknown]
  - Haematemesis [Unknown]
  - Haematoma [Unknown]
